FAERS Safety Report 18053996 (Version 4)
Quarter: 2021Q1

REPORT INFORMATION
  Report Type: Spontaneous
  Country: US (occurrence: US)
  Receive Date: 20200722
  Receipt Date: 20210106
  Transmission Date: 20210419
  Serious: No
  Sender: FDA-Public Use
  Company Number: US-PFIZER INC-2020279683

PATIENT
  Age: 76 Year
  Sex: Female

DRUGS (1)
  1. IBRANCE [Suspect]
     Active Substance: PALBOCICLIB
     Indication: BREAST CANCER FEMALE
     Dosage: 75 MG, CYCLIC, (TAKE 1 TABLET BY MOUTH 1 TIME PER DAY ON DAYS 1?14, FOLLOWED BY 14 DAYS OFF 28 DAY)
     Route: 048

REACTIONS (1)
  - Hypoacusis [Unknown]
